FAERS Safety Report 16287346 (Version 2)
Quarter: 2019Q2

REPORT INFORMATION
  Report Type: Spontaneous
  Country: BE (occurrence: BE)
  Receive Date: 20190508
  Receipt Date: 20190516
  Transmission Date: 20190711
  Serious: Yes (Other)
  Sender: FDA-Public Use
  Company Number: BE-PFIZER INC-2019190397

PATIENT
  Age: 43 Year
  Sex: Female
  Weight: 52 kg

DRUGS (4)
  1. INTRAUTERINE CONTRACEPTIVE DEVICE [Concomitant]
     Active Substance: COPPER
     Indication: INTRAUTERINE CONTRACEPTION
     Dosage: UNK
     Dates: end: 201903
  2. INTRAUTERINE CONTRACEPTIVE DEVICE [Concomitant]
     Active Substance: COPPER
     Indication: FEMALE STERILISATION
  3. PARACETAMOL [Concomitant]
     Active Substance: ACETAMINOPHEN
     Indication: HEADACHE
     Dosage: OCCASIONALLY
  4. SERTRALINE HCL [Suspect]
     Active Substance: SERTRALINE HYDROCHLORIDE
     Indication: DEPRESSION
     Dosage: 0.5 DF, 1X/DAY, DOSES DECREASED FROM 50 TO 25 MG GIVEN THE POSITIVE EVOLUTION OF DISEASE
     Route: 048
     Dates: start: 20181015, end: 20190225

REACTIONS (25)
  - Blindness day [Unknown]
  - Nausea [Not Recovered/Not Resolved]
  - Oropharyngeal pain [Unknown]
  - Hyperacusis [Unknown]
  - Fall [Unknown]
  - Fatigue [Unknown]
  - Musculoskeletal chest pain [Unknown]
  - Dehydration [Not Recovered/Not Resolved]
  - Ear pain [Unknown]
  - Eye discharge [Unknown]
  - Insomnia [Not Recovered/Not Resolved]
  - Dry eye [Unknown]
  - Muscle spasms [Unknown]
  - Tinnitus [Unknown]
  - Nasal dryness [Unknown]
  - Feeling hot [Unknown]
  - Ocular discomfort [Unknown]
  - Headache [Not Recovered/Not Resolved]
  - Thirst [Unknown]
  - Breast mass [Unknown]
  - Condition aggravated [Not Recovered/Not Resolved]
  - Hangover [Unknown]
  - Dry skin [Unknown]
  - Dry throat [Unknown]
  - Somnolence [Unknown]

NARRATIVE: CASE EVENT DATE: 20181015
